FAERS Safety Report 5345275-X (Version None)
Quarter: 2007Q2

REPORT INFORMATION
  Report Type: 
  Country: None (occurrence: None)
  Receive Date: 20070531
  Receipt Date: 20070521
  Transmission Date: 20071010
  Serious: Yes (Hospitalization)
  Sender: FDA-Public Use
  Company Number: 2007BI008996

PATIENT
  Age: 53 Year
  Sex: Female
  Weight: 81.1939 kg

DRUGS (8)
  1. AVONEX [Suspect]
     Indication: MULTIPLE SCLEROSIS
     Dosage: 30 UG; QW; IM
     Route: 030
     Dates: start: 20020101, end: 20030101
  2. AVONEX [Suspect]
     Indication: MULTIPLE SCLEROSIS
     Dosage: IM
     Route: 030
     Dates: start: 20030101
  3. TENORMIN [Concomitant]
  4. LASIX [Concomitant]
  5. POTASSIUM ACETATE [Concomitant]
  6. NEXIUM [Concomitant]
  7. PREVACID [Concomitant]
  8. SYMMETREL [Concomitant]

REACTIONS (11)
  - ABDOMINAL HERNIA [None]
  - ARTHRITIS [None]
  - CONTRACTED BLADDER [None]
  - DEPRESSION [None]
  - FIBROMYALGIA [None]
  - FISTULA [None]
  - INFLAMMATION [None]
  - MULTIPLE SCLEROSIS [None]
  - MUSCULAR WEAKNESS [None]
  - PAIN [None]
  - SLEEP DISORDER [None]
